FAERS Safety Report 24155766 (Version 1)
Quarter: 2024Q3

REPORT INFORMATION
  Report Type: Spontaneous
  Country: BY (occurrence: BY)
  Receive Date: 20240731
  Receipt Date: 20240731
  Transmission Date: 20241016
  Serious: Yes (Other)
  Sender: MYLAN
  Company Number: BY-MYLANLABS-2024M1070747

PATIENT
  Age: 46 Year

DRUGS (4)
  1. PRETOMANID [Suspect]
     Active Substance: PRETOMANID
     Indication: Tuberculosis
     Dosage: UNK
     Route: 065
  2. LINEZOLID [Suspect]
     Active Substance: LINEZOLID
     Indication: Tuberculosis
     Dosage: UNK
     Route: 065
  3. BEDAQUILINE [Suspect]
     Active Substance: BEDAQUILINE
     Indication: Tuberculosis
     Dosage: UNK
     Route: 065
  4. CLOFAZIMINE [Suspect]
     Active Substance: CLOFAZIMINE
     Indication: Tuberculosis
     Dosage: UNK
     Route: 065

REACTIONS (5)
  - Acute kidney injury [Not Recovered/Not Resolved]
  - Pancreatitis [Unknown]
  - Hepatitis toxic [Unknown]
  - Electrocardiogram QT prolonged [Unknown]
  - Anaemia [Unknown]
